FAERS Safety Report 4915991-X (Version None)
Quarter: 2006Q1

REPORT INFORMATION
  Report Type: 
  Country: None (occurrence: None)
  Receive Date: 20060214
  Receipt Date: 20060126
  Transmission Date: 20060701
  Serious: Yes (Hospitalization)
  Sender: FDA-Public Use
  Company Number: US200601005470

PATIENT
  Age: 12 Year
  Sex: Female

DRUGS (3)
  1. STRATTERA [Suspect]
     Dosage: 80 MG, TABLETS, ORAL; SEE IMAGE
     Route: 048
     Dates: start: 20040701, end: 20040701
  2. STRATTERA [Suspect]
     Dosage: 80 MG, TABLETS, ORAL; SEE IMAGE
     Route: 048
     Dates: start: 20040701, end: 20051115
  3. STRATTERA [Suspect]
     Dosage: 80 MG, TABLETS, ORAL; SEE IMAGE
     Route: 048
     Dates: start: 20051115, end: 20060122

REACTIONS (4)
  - ALANINE AMINOTRANSFERASE INCREASED [None]
  - ASPARTATE AMINOTRANSFERASE INCREASED [None]
  - DISTURBANCE IN ATTENTION [None]
  - KIDNEY INFECTION [None]
